FAERS Safety Report 5036744-0 (Version None)
Quarter: 2006Q2

REPORT INFORMATION
  Report Type: 
  Country: None (occurrence: None)
  Receive Date: 20060616
  Receipt Date: 20060306
  Transmission Date: 20061013
  Serious: No
  Sender: FDA-Public Use
  Company Number: 2006RL000084

PATIENT
  Age: 42 Year
  Sex: Male
  Weight: 93.441 kg

DRUGS (2)
  1. OMACOR [Suspect]
     Indication: BLOOD TRIGLYCERIDES
     Dosage: 2 GM; BID; PO
     Route: 048
     Dates: start: 20060203
  2. CADUET [Concomitant]

REACTIONS (2)
  - CHOKING [None]
  - DYSPHAGIA [None]
